FAERS Safety Report 6691278-2 (Version None)
Quarter: 2010Q2

REPORT INFORMATION
  Report Type: 
  Country: None (occurrence: None)
  Receive Date: 20100416
  Receipt Date: 20100407
  Transmission Date: 20101027
  Serious: Yes (Other)
  Sender: FDA-Public Use
  Company Number: JP-1181457

PATIENT
  Sex: Male

DRUGS (2)
  1. TRAVATAN Z [Suspect]
     Dosage: OPHTHALMIC
     Route: 047
  2. AZOPT [Suspect]
     Dosage: OPHTHALMIC
     Route: 047

REACTIONS (1)
  - ARRHYTHMIA [None]
